FAERS Safety Report 9728668 (Version 1)
Quarter: 2013Q4

REPORT INFORMATION
  Report Type: Spontaneous
  Country: US (occurrence: US)
  Receive Date: 20131204
  Receipt Date: 20131204
  Transmission Date: 20140711
  Serious: No
  Sender: FDA-Public Use
  Company Number: US-PFIZER INC-2013343144

PATIENT
  Sex: Female

DRUGS (2)
  1. DICLOFENAC [Suspect]
     Dosage: UNK
  2. MISOPROSTOL [Suspect]
     Dosage: UNK

REACTIONS (1)
  - Rash pruritic [Unknown]
